FAERS Safety Report 8351497-6 (Version None)
Quarter: 2012Q2

REPORT INFORMATION
  Report Type: 
  Country: None (occurrence: None)
  Receive Date: 20120510
  Receipt Date: 20120509
  Transmission Date: 20120825
  Serious: Yes (Hospitalization)
  Sender: FDA-Public Use
  Company Number: AU-AMGEN-AUSSP2012029301

PATIENT
  Age: 16 Year
  Sex: Male

DRUGS (5)
  1. VINBLASTINE SULFATE [Concomitant]
     Indication: NON-HODGKIN'S LYMPHOMA
     Dosage: UNK UNK, PER CHEMO REGIM
  2. DACARBAZINE [Concomitant]
     Indication: NON-HODGKIN'S LYMPHOMA
     Dosage: UNK UNK, PER CHEMO REGIM
  3. NEULASTA [Suspect]
     Indication: CHEMOTHERAPY
     Dosage: UNK UNK, AFTER CHEMO
     Dates: start: 20120505
  4. BLEOMYCIN SULFATE [Concomitant]
     Indication: NON-HODGKIN'S LYMPHOMA
     Dosage: UNK UNK, PER CHEMO REGIM
  5. DOXORUBICIN HCL [Concomitant]
     Indication: NON-HODGKIN'S LYMPHOMA
     Dosage: UNK UNK, PER CHEMO REGIM

REACTIONS (3)
  - SWELLING FACE [None]
  - LIP SWELLING [None]
  - ANAPHYLACTIC REACTION [None]
